FAERS Safety Report 8238867-1 (Version None)
Quarter: 2012Q1

REPORT INFORMATION
  Report Type: 
  Country: None (occurrence: None)
  Receive Date: 20120327
  Receipt Date: 20120322
  Transmission Date: 20120608
  Serious: Yes (Life-Threatening, Hospitalization)
  Sender: FDA-Public Use
  Company Number: US-AMGEN-USACT2012018771

PATIENT
  Age: 58 Year
  Sex: Male

DRUGS (9)
  1. VANCOMYCIN [Concomitant]
  2. NORVASC [Concomitant]
     Dosage: 10 MG, QD
  3. CLONIDINE [Concomitant]
     Dosage: UNK UNK, BID
  4. MONOPRIL [Concomitant]
     Dosage: 10 MG, QD
  5. CINACALCET HYDROCHLORIDE [Suspect]
     Indication: HYPERPARATHYROIDISM SECONDARY
     Dosage: UNK, QD
     Route: 048
     Dates: start: 20070107
  6. COUMADIN [Concomitant]
  7. EPOGEN [Concomitant]
  8. METOPROLOL SUCCINATE [Concomitant]
     Dosage: 50 MG, BID
  9. CARDURA [Concomitant]
     Dosage: 8 MG, QD

REACTIONS (3)
  - HYPERKALAEMIA [None]
  - CARDIAC FAILURE CONGESTIVE [None]
  - COAGULOPATHY [None]
